FAERS Safety Report 6173543-0 (Version None)
Quarter: 2009Q2

REPORT INFORMATION
  Report Type: 
  Country: None (occurrence: None)
  Receive Date: 20090430
  Receipt Date: 20090421
  Transmission Date: 20091009
  Serious: Yes (Hospitalization)
  Sender: FDA-Public Use
  Company Number: B0569962A

PATIENT
  Sex: Male

DRUGS (6)
  1. RELENZA [Suspect]
     Indication: INFLUENZA
     Dosage: 5MG TWICE PER DAY
     Route: 055
     Dates: start: 20090309, end: 20090310
  2. LOXONIN [Concomitant]
     Route: 065
     Dates: start: 20090308, end: 20090310
  3. SALSOLON [Concomitant]
     Route: 042
     Dates: start: 20090308, end: 20090310
  4. FLAVERIC [Concomitant]
     Indication: INFLUENZA
     Dosage: 60MG PER DAY
     Route: 048
     Dates: start: 20090309, end: 20090310
  5. UNKNOWN DRUG [Concomitant]
     Indication: INFLUENZA
     Dosage: 180MG PER DAY
     Route: 048
     Dates: start: 20090309, end: 20090310
  6. NIPOLAZIN [Concomitant]
     Indication: INFLUENZA
     Dosage: 6MG PER DAY
     Route: 048
     Dates: start: 20090309, end: 20090310

REACTIONS (8)
  - ASPARTATE AMINOTRANSFERASE INCREASED [None]
  - BLOOD IMMUNOGLOBULIN E INCREASED [None]
  - C-REACTIVE PROTEIN INCREASED [None]
  - ERYTHEMA [None]
  - GENERALISED ERYTHEMA [None]
  - PHARYNGEAL ERYTHEMA [None]
  - RASH [None]
  - WHITE BLOOD CELL COUNT INCREASED [None]
